FAERS Safety Report 6124362-2 (Version None)
Quarter: 2009Q1

REPORT INFORMATION
  Report Type: 
  Country: None (occurrence: None)
  Receive Date: 20090317
  Receipt Date: 20090303
  Transmission Date: 20090719
  Serious: Yes (Hospitalization)
  Sender: FDA-Public Use
  Company Number: 205800

PATIENT
  Age: 63 Year
  Sex: Female

DRUGS (2)
  1. LIDOCAINE HYDROCHLORIDE [Suspect]
     Indication: LOCAL ANAESTHESIA
     Dosage: ONCE, INTRA-ARTICULAR
     Route: 014
  2. METHYLPREDNISOLONE ACETATE [Suspect]
     Indication: JOINT INJECTION
     Dosage: ONCE, INTRA-ARTICULAR
     Route: 014
     Dates: start: 20090114, end: 20090114

REACTIONS (3)
  - ARTHRITIS BACTERIAL [None]
  - INJECTION SITE INFECTION [None]
  - SEPSIS [None]
